FAERS Safety Report 6146368-X (Version None)
Quarter: 2009Q2

REPORT INFORMATION
  Report Type: 
  Country: None (occurrence: None)
  Receive Date: 20090407
  Receipt Date: 20090331
  Transmission Date: 20091009
  Serious: Yes (Hospitalization)
  Sender: FDA-Public Use
  Company Number: GR-BRISTOL-MYERS SQUIBB COMPANY-14572283

PATIENT
  Age: 78 Year
  Sex: Female

DRUGS (4)
  1. METFORMIN HCL [Suspect]
     Indication: TYPE 2 DIABETES MELLITUS
  2. FUROSEMIDE [Concomitant]
  3. GLICLAZIDE [Concomitant]
  4. QUINAPRIL [Concomitant]

REACTIONS (2)
  - BLOOD LACTIC ACID INCREASED [None]
  - ISCHAEMIC STROKE [None]
